FAERS Safety Report 21689747 (Version 1)
Quarter: 2022Q4

REPORT INFORMATION
  Report Type: Report from Study
  Country: RO (occurrence: RO)
  Receive Date: 20221206
  Receipt Date: 20221206
  Transmission Date: 20230113
  Serious: Yes (Death, Other)
  Sender: FDA-Public Use
  Company Number: RO-ABBVIE-4222405

PATIENT
  Sex: Male
  Weight: 58 kg

DRUGS (9)
  1. VENETOCLAX [Suspect]
     Active Substance: VENETOCLAX
     Indication: Mantle cell lymphoma refractory
     Dosage: 400-600 MG DAILY
     Route: 048
     Dates: start: 202109, end: 202210
  2. VENETOCLAX [Suspect]
     Active Substance: VENETOCLAX
     Indication: Mantle cell lymphoma refractory
     Dosage: 400 MG DAILY FINAL DOSE WEEK 1-20 MG,WEEK 2 -50MG,WEEK3-100MG,WEEK4-200MG, WEEK 5 AND AFTER 400 MG
     Route: 048
  3. PERINDOPRIL [Concomitant]
     Active Substance: PERINDOPRIL
     Indication: Product used for unknown indication
  4. ASPIRIN [Concomitant]
     Active Substance: ASPIRIN
     Indication: Product used for unknown indication
  5. METOPROLOL [Concomitant]
     Active Substance: METOPROLOL
     Indication: Product used for unknown indication
  6. ATORVASTATIN [Concomitant]
     Active Substance: ATORVASTATIN
     Indication: Myocardial ischaemia
  7. FILGRASTIM [Concomitant]
     Active Substance: FILGRASTIM
     Indication: Prophylaxis
     Route: 058
  8. BISEPTOL [Concomitant]
     Active Substance: SULFAMETHOXAZOLE\TRIMETHOPRIM
     Indication: Antifungal prophylaxis
     Dosage: 2 TABLET
     Route: 048
  9. ALLOPURINOL [Concomitant]
     Active Substance: ALLOPURINOL
     Indication: Hyperuricosuria
     Dosage: 100 MILLIGRAM
     Route: 048

REACTIONS (4)
  - Mantle cell lymphoma [Fatal]
  - Brain neoplasm [Unknown]
  - Lymphadenopathy [Unknown]
  - B-cell lymphoma [Unknown]

NARRATIVE: CASE EVENT DATE: 20221002
